FAERS Safety Report 7241339-4 (Version None)
Quarter: 2011Q1

REPORT INFORMATION
  Report Type: 
  Country: None (occurrence: None)
  Receive Date: 20110124
  Receipt Date: 20110114
  Transmission Date: 20110831
  Serious: Yes (Hospitalization)
  Sender: FDA-Public Use
  Company Number: US-SANOFI-AVENTIS-2011SA003721

PATIENT
  Age: 72 Year
  Sex: Female

DRUGS (11)
  1. CALTRATE [Concomitant]
  2. METFORMIN [Concomitant]
  3. METOPROLOL [Concomitant]
  4. ZOCOR [Concomitant]
  5. DABIGATRAN [Suspect]
     Indication: ATRIAL FIBRILLATION
     Route: 065
     Dates: start: 20110106
  6. MULTAQ [Suspect]
     Indication: ATRIAL FIBRILLATION
     Route: 048
     Dates: start: 20110106
  7. WELCHOL [Concomitant]
  8. IMDUR [Concomitant]
  9. AMOXICILLIN [Concomitant]
  10. ASPIRIN [Concomitant]
  11. VALSARTAN [Concomitant]

REACTIONS (1)
  - GASTROINTESTINAL HAEMORRHAGE [None]
